FAERS Safety Report 9386063 (Version 1)
Quarter: 2013Q3

REPORT INFORMATION
  Report Type: Spontaneous
  Country: BR (occurrence: BR)
  Receive Date: 20130706
  Receipt Date: 20130706
  Transmission Date: 20140515
  Serious: Yes (Life-Threatening, Hospitalization)
  Sender: FDA-Public Use
  Company Number: BR-ABBOTT-13X-020-1114996-00

PATIENT
  Sex: Female

DRUGS (6)
  1. VENLAFAXINE [Suspect]
     Indication: PRODUCT USED FOR UNKNOWN INDICATION
  2. RIVOTRIL [Concomitant]
     Indication: PRODUCT USED FOR UNKNOWN INDICATION
  3. RIVOTRIL [Concomitant]
  4. DONAREN [Concomitant]
     Indication: PRODUCT USED FOR UNKNOWN INDICATION
  5. DEPAKOTE [Suspect]
     Indication: PRODUCT USED FOR UNKNOWN INDICATION
     Dosage: 1 TABLET AT DAY/ 2 TABLETS AT NIGHT
  6. DEPAKOTE ER [Suspect]
     Indication: PRODUCT USED FOR UNKNOWN INDICATION
     Dosage: 1000MG

REACTIONS (11)
  - Suicide attempt [Unknown]
  - Suicide attempt [Unknown]
  - Toxicity to various agents [Unknown]
  - Depression [Unknown]
  - Drug withdrawal syndrome [Unknown]
  - Dyspnoea [Unknown]
  - Abdominal pain [Unknown]
  - Nausea [Unknown]
  - Hyperhidrosis [Unknown]
  - Bradyphrenia [Unknown]
  - Off label use [Unknown]
